FAERS Safety Report 5168937-6 (Version None)
Quarter: 2006Q4

REPORT INFORMATION
  Report Type: 
  Country: None (occurrence: None)
  Receive Date: 20061211
  Receipt Date: 20061128
  Transmission Date: 20070319
  Serious: Yes (Death, Life-Threatening, Hospitalization)
  Sender: FDA-Public Use
  Company Number: JP-BRISTOL-MYERS SQUIBB COMPANY-13601364

PATIENT
  Age: 61 Year
  Sex: Male

DRUGS (7)
  1. MEVALOTIN [Suspect]
     Indication: HYPERLIPIDAEMIA
     Route: 048
     Dates: start: 20060309
  2. OLMETEC [Suspect]
     Indication: HYPERTENSION
     Route: 048
     Dates: start: 20040807
  3. ZANTAC [Suspect]
     Route: 048
     Dates: start: 20030106
  4. NORVASC [Suspect]
     Route: 048
     Dates: start: 20020119
  5. ETIZOLAM [Suspect]
     Route: 048
     Dates: start: 20010804
  6. NICHOLASE [Concomitant]
     Indication: NASOPHARYNGITIS
     Route: 048
     Dates: start: 20061013
  7. HUSCODE [Concomitant]
     Indication: NASOPHARYNGITIS

REACTIONS (1)
  - INTERSTITIAL LUNG DISEASE [None]
